FAERS Safety Report 6725277-9 (Version None)
Quarter: 2010Q2

REPORT INFORMATION
  Report Type: 
  Country: None (occurrence: None)
  Receive Date: 20100514
  Receipt Date: 20100510
  Transmission Date: 20101027
  Serious: Yes (Hospitalization)
  Sender: FDA-Public Use
  Company Number: US-B.I. PHARMACEUTICALS,INC./RIDGEFIELD-2010-BP-05373BP

PATIENT
  Sex: Female

DRUGS (14)
  1. SPIRIVA [Suspect]
     Indication: CHRONIC OBSTRUCTIVE PULMONARY DISEASE
     Dosage: 18 MCG
     Route: 055
     Dates: start: 20100301
  2. SYMBICORT [Concomitant]
     Indication: CHRONIC OBSTRUCTIVE PULMONARY DISEASE
  3. LEVOXYL [Concomitant]
     Indication: HYPOTHYROIDISM
  4. BONIVA [Concomitant]
     Indication: OSTEOPOROSIS
  5. CARVEDILOL [Concomitant]
     Indication: HYPERTENSION
  6. AMLODIPINE [Concomitant]
     Indication: HYPERTENSION
  7. TRIAMTERENE [Concomitant]
     Indication: OEDEMA PERIPHERAL
  8. PRAVACHOL [Concomitant]
     Indication: BLOOD CHOLESTEROL INCREASED
  9. REQUIP [Concomitant]
     Indication: RESTLESS LEGS SYNDROME
  10. HYDROCODONE [Concomitant]
     Indication: SPINAL COLUMN STENOSIS
  11. IPRATROPIUM [Concomitant]
     Indication: RHINORRHOEA
  12. XYZAL [Concomitant]
     Indication: RHINORRHOEA
  13. OMEPRAZOLE [Concomitant]
     Indication: GASTROOESOPHAGEAL REFLUX DISEASE
  14. TIMOPTIC-XE [Concomitant]
     Indication: GLAUCOMA

REACTIONS (1)
  - TRANSIENT ISCHAEMIC ATTACK [None]
